FAERS Safety Report 7833376-3 (Version None)
Quarter: 2011Q4

REPORT INFORMATION
  Report Type: 
  Country: None (occurrence: None)
  Receive Date: 20111024
  Receipt Date: 20111017
  Transmission Date: 20120403
  Serious: No
  Sender: FDA-Public Use
  Company Number: US-PFIZER INC-2011220208

PATIENT
  Sex: Female
  Weight: 63 kg

DRUGS (5)
  1. ADDERALL 5 [Concomitant]
     Dosage: UNK
  2. DEPO-PROVERA [Suspect]
     Indication: CONTRACEPTION
     Dosage: 150 MG, EVERY 3 MONTHS
     Dates: start: 19930701
  3. DEPO-PROVERA [Suspect]
     Indication: CROHN'S DISEASE
  4. SEPTRA DS [Concomitant]
     Dosage: UNK
  5. DEPO-PROVERA [Suspect]
     Indication: MENSTRUAL DISCOMFORT

REACTIONS (1)
  - FEELING ABNORMAL [None]
